FAERS Safety Report 9109163 (Version 3)
Quarter: 2014Q3

REPORT INFORMATION
  Report Type: Report from Study
  Country: US (occurrence: US)
  Receive Date: 20130222
  Receipt Date: 20140805
  Transmission Date: 20150326
  Serious: Yes (Hospitalization)
  Sender: FDA-Public Use
  Company Number: US-ACTELION-A-NJ2013-78889

PATIENT
  Age: 54 Year
  Sex: Male

DRUGS (14)
  1. PRILOSEC [Concomitant]
     Active Substance: OMEPRAZOLE MAGNESIUM
     Dosage: 20 MG, UNK
     Route: 048
     Dates: start: 20121221
  2. ULTRAM [Concomitant]
     Active Substance: TRAMADOL HYDROCHLORIDE
     Dosage: 100 MG, Q6HRS
     Route: 048
     Dates: start: 20121121
  3. VELETRI [Suspect]
     Active Substance: EPOPROSTENOL
     Indication: PULMONARY ARTERIAL HYPERTENSION
     Dosage: 21.5 NG/KG, PER MIN
     Route: 041
     Dates: start: 20110624
  4. ASPIRIN. [Concomitant]
     Active Substance: ASPIRIN
     Dosage: 81 MG, QD
     Route: 048
  5. PEPCID [Concomitant]
     Active Substance: FAMOTIDINE
     Dosage: 20 MG, BID
     Route: 048
  6. TAPAZOLE [Concomitant]
     Active Substance: METHIMAZOLE
     Dosage: 10 MG, TID
     Route: 048
     Dates: start: 20130108
  7. OXYGEN. [Concomitant]
     Active Substance: OXYGEN
  8. SILDENAFIL [Concomitant]
     Active Substance: SILDENAFIL
     Dosage: 20 MG, TID
     Route: 048
     Dates: start: 20110803
  9. LASIX [Concomitant]
     Active Substance: FUROSEMIDE
     Dosage: 40 MG, BID
     Route: 048
     Dates: start: 20120626
  10. POTASSIUM CHLORIDE. [Concomitant]
     Active Substance: POTASSIUM CHLORIDE
     Dosage: 20 MEQ, UNK
     Route: 048
     Dates: start: 20120312
  11. TRACLEER [Suspect]
     Active Substance: BOSENTAN\BOSENTAN MONOHYDRATE
     Indication: PULMONARY ARTERIAL HYPERTENSION
     Dosage: 125 MG, BID
     Route: 048
  12. NORCO [Concomitant]
     Active Substance: ACETAMINOPHEN\HYDROCODONE BITARTRATE
     Dosage: 10-325 MG/TABLET, Q6HRS
     Route: 048
     Dates: start: 20121121
  13. MAG-OX [Concomitant]
     Dosage: 400 MG, BID
     Route: 048
     Dates: start: 20120312
  14. DEMADEX [Concomitant]
     Active Substance: TORSEMIDE
     Dosage: 20 MG, 2 TIMES IN THE MORNING AND ONCE IN THE AFTERNOON
     Route: 048
     Dates: start: 20120813

REACTIONS (12)
  - Blood culture positive [Recovered/Resolved]
  - Pseudomonas test positive [Recovered/Resolved]
  - Sepsis [Unknown]
  - Catheter site pain [Recovered/Resolved]
  - Catheter culture positive [Recovered/Resolved]
  - Streptococcus test positive [Recovered/Resolved]
  - Bacteraemia [Recovered/Resolved]
  - Basedow^s disease [Unknown]
  - Device related infection [Recovered/Resolved]
  - Catheter site erythema [Recovered/Resolved]
  - Catheter placement [Recovered/Resolved]
  - Catheter site swelling [Recovered/Resolved]

NARRATIVE: CASE EVENT DATE: 20120812
